FAERS Safety Report 6130362-9 (Version None)
Quarter: 2009Q1

REPORT INFORMATION
  Report Type: 
  Country: None (occurrence: None)
  Receive Date: 20090324
  Receipt Date: 20090312
  Transmission Date: 20090719
  Serious: Yes (Death, Other)
  Sender: FDA-Public Use
  Company Number: US-ELI_LILLY_AND_COMPANY-US200903003495

PATIENT
  Age: 62 Year
  Sex: Female

DRUGS (2)
  1. ZYPREXA [Suspect]
     Indication: BIPOLAR DISORDER
  2. ALCOHOL [Concomitant]

REACTIONS (3)
  - BLOOD ALCOHOL INCREASED [None]
  - DRUG INTERACTION [None]
  - OVERDOSE [None]
